FAERS Safety Report 6966284-0 (Version None)
Quarter: 2010Q3

REPORT INFORMATION
  Report Type: 
  Country: None (occurrence: None)
  Receive Date: 20100903
  Receipt Date: 20100820
  Transmission Date: 20110219
  Serious: Yes (Hospitalization, Other)
  Sender: FDA-Public Use
  Company Number: PHHY2010FR55335

PATIENT
  Sex: Male

DRUGS (7)
  1. VALSARTAN  AND HYDROCHLOROTHIAZIDE [Suspect]
     Dosage: 160/25 MG ONCE DAILY
     Route: 048
  2. KIVEXA [Suspect]
     Indication: HIV INFECTION
     Dosage: 600/300 MG, ONCE DAILY
     Route: 048
     Dates: start: 20090101
  3. SUSTIVA [Suspect]
     Indication: HIV INFECTION
     Dosage: 600 MG, ONCE DAILY
     Route: 048
     Dates: start: 20040101
  4. CRESTOR [Suspect]
     Dosage: 5 MG, ONCE DAILY
     Route: 048
     Dates: start: 20080101
  5. FENOFIBRATE [Suspect]
     Dosage: 160 MG, ONCE DAILY
     Route: 048
  6. LERCANIDIPINE [Suspect]
     Dosage: 20 MG, ONCE DAILY
     Route: 048
  7. KARDEGIC [Suspect]
     Dosage: 75 MG, ONCE DAILY

REACTIONS (13)
  - ACUTE CORONARY SYNDROME [None]
  - AORTIC CALCIFICATION [None]
  - BLOOD TRIGLYCERIDES INCREASED [None]
  - C-REACTIVE PROTEIN INCREASED [None]
  - CAROTID ARTERY STENOSIS [None]
  - CHEST PAIN [None]
  - DYSPNOEA EXERTIONAL [None]
  - HAEMATOMA [None]
  - HEADACHE [None]
  - HYPERTROPHIC CARDIOMYOPATHY [None]
  - INTERMITTENT CLAUDICATION [None]
  - MYOCARDIAL INFARCTION [None]
  - TROPONIN INCREASED [None]
